FAERS Safety Report 9592368 (Version 1)
Quarter: 2013Q3

REPORT INFORMATION
  Report Type: Spontaneous
  Country: US (occurrence: None)
  Receive Date: 20130930
  Receipt Date: 20130930
  Transmission Date: 20140515
  Serious: Yes (Other)
  Sender: FDA-Public Use
  Company Number: 1000047292

PATIENT
  Age: 40 Year
  Sex: Male

DRUGS (4)
  1. LINZESS (LINACLOTIDE) (145 MICROGRAM, CAPSULES) [Suspect]
     Indication: IRRITABLE BOWEL SYNDROME
     Dosage: 145MCG (145MCG, 1 IN 1)
     Dates: start: 201306, end: 2013
  2. LINZESS (LINACLOTIDE) (145 MICROGRAM, CAPSULES) [Suspect]
     Indication: CONSTIPATION
     Dosage: 145MCG (145MCG, 1 IN 1)
     Dates: start: 201306, end: 2013
  3. LINZESS (LINACLOTIDE) (145 MICROGRAM CAPSULES) [Suspect]
     Indication: IRRITABLE BOWEL SYNDROME
     Dates: start: 2013, end: 2013
  4. LINZESS (LINACLOTIDE) (145 MICROGRAM CAPSULES) [Suspect]
     Indication: CONSTIPATION
     Dates: start: 2013, end: 2013

REACTIONS (1)
  - Diarrhoea [None]
